FAERS Safety Report 24591522 (Version 1)
Quarter: 2024Q4

REPORT INFORMATION
  Report Type: Spontaneous
  Country: BR (occurrence: BR)
  Receive Date: 20241108
  Receipt Date: 20241108
  Transmission Date: 20250114
  Serious: Yes (Other)
  Sender: MERCK KGAA
  Company Number: BR-Merck Healthcare KGaA-2024057387

PATIENT
  Sex: Male

DRUGS (1)
  1. LEVOTHYROXINE SODIUM [Suspect]
     Active Substance: LEVOTHYROXINE SODIUM
     Indication: Pituitary tumour
     Route: 048

REACTIONS (16)
  - Nervous system disorder [Unknown]
  - Mental disorder [Unknown]
  - Cerebral atrophy [Unknown]
  - Asphyxia [Unknown]
  - Stress [Unknown]
  - Pain [Unknown]
  - Cerebral disorder [Unknown]
  - Atrophy [Unknown]
  - General physical health deterioration [Unknown]
  - Respiratory rate increased [Unknown]
  - Impaired reasoning [Unknown]
  - Apathy [Unknown]
  - Disturbance in attention [Unknown]
  - Psychiatric symptom [Unknown]
  - Muscle spasms [Unknown]
  - Off label use [Unknown]
